APPROVED DRUG PRODUCT: CARBIDOPA AND LEVODOPA
Active Ingredient: CARBIDOPA; LEVODOPA
Strength: 25MG;100MG
Dosage Form/Route: TABLET, EXTENDED RELEASE;ORAL
Application: A076521 | Product #001 | TE Code: AB
Applicant: IMPAX LABORATORIES INC
Approved: May 14, 2004 | RLD: No | RS: No | Type: RX